FAERS Safety Report 4664498-6 (Version None)
Quarter: 2005Q2

REPORT INFORMATION
  Report Type: 
  Country: None (occurrence: None)
  Receive Date: 20050518
  Receipt Date: 20050511
  Transmission Date: 20051028
  Serious: Yes (Other)
  Sender: FDA-Public Use
  Company Number: 200514282GDDC

PATIENT
  Age: 71 Year
  Sex: Female

DRUGS (9)
  1. CLEXANE [Suspect]
     Route: 058
     Dates: start: 20041009, end: 20041010
  2. FLAGYL [Suspect]
     Indication: OPEN WOUND
     Route: 042
     Dates: start: 20041006, end: 20041010
  3. VANCOMYCIN [Suspect]
     Indication: OPEN WOUND
     Route: 042
     Dates: start: 20041005, end: 20041010
  4. METOPROLOL TARTRATE [Concomitant]
     Route: 048
  5. PARACETAMOL [Concomitant]
     Route: 048
  6. LASIX [Concomitant]
     Route: 048
  7. ASPIRIN [Concomitant]
     Route: 048
  8. THYROXINE SODIUM [Concomitant]
     Route: 048
  9. SIMVASTATIN [Concomitant]
     Route: 048

REACTIONS (1)
  - THROMBOCYTOPENIA [None]
